FAERS Safety Report 4501741-8 (Version None)
Quarter: 2004Q4

REPORT INFORMATION
  Report Type: 
  Country: None (occurrence: None)
  Receive Date: 20041109
  Receipt Date: 20041027
  Transmission Date: 20050328
  Serious: Yes (Hospitalization)
  Sender: FDA-Public Use
  Company Number: GBR-2004-0001308

PATIENT
  Age: 76 Year
  Sex: Male

DRUGS (6)
  1. OXYCONTIN [Suspect]
     Indication: BACK PAIN
     Dosage: 20 + 40 MG, DAILY, ORAL
     Route: 048
     Dates: start: 20040301
  2. OXYCONTIN [Suspect]
     Indication: BACK PAIN
     Dosage: 20 + 40 MG, DAILY, ORAL
     Route: 048
     Dates: start: 20040401
  3. REMINYL [Suspect]
     Indication: DEMENTIA ALZHEIMER'S TYPE
     Dosage: 24 MG, DAILY, ORAL
     Route: 048
     Dates: start: 20040101
  4. PREVISCAN(FLUINDIONE) [Suspect]
     Dosage: 3/4 OF A TABLET,ORAL
     Route: 048
  5. OMEPRAZOLE [Suspect]
     Indication: DEMENTIA ALZHEIMER'S TYPE
     Dosage: DAILY, ORAL
     Route: 048
  6. LASIX [Suspect]
     Indication: CARDIAC FAILURE
     Dosage: DAILY, ORAL
     Route: 048

REACTIONS (3)
  - DRUG EFFECT DECREASED [None]
  - LOSS OF CONSCIOUSNESS [None]
  - RESPIRATORY DEPRESSION [None]
